FAERS Safety Report 9765262 (Version 1)
Quarter: 2013Q4

REPORT INFORMATION
  Report Type: Spontaneous
  Country: US (occurrence: US)
  Receive Date: 20131217
  Receipt Date: 20131217
  Transmission Date: 20140711
  Serious: No
  Sender: FDA-Public Use
  Company Number: US-BIOGENIDEC-2013BI110360

PATIENT
  Age: 41 Year
  Sex: Female

DRUGS (11)
  1. TECFIDERA [Suspect]
     Indication: MULTIPLE SCLEROSIS
     Route: 048
  2. CYMBALTA [Concomitant]
     Route: 048
  3. ESTRADIOL [Concomitant]
     Route: 048
  4. LANSOPRAZOLE [Concomitant]
     Route: 048
  5. ADDERALL [Concomitant]
     Route: 048
  6. IRON SUPPLEMENT [Concomitant]
  7. FLAXSEED [Concomitant]
  8. GINKO BILOBA [Concomitant]
  9. MIRALAX [Concomitant]
  10. VITAMIN B12 [Concomitant]
     Route: 048
  11. VITAMIN D [Concomitant]
     Route: 048

REACTIONS (1)
  - Anaemia [Unknown]
